FAERS Safety Report 6239119-1 (Version None)
Quarter: 2009Q2

REPORT INFORMATION
  Report Type: 
  Country: None (occurrence: None)
  Receive Date: 20090618
  Receipt Date: 20090618
  Transmission Date: 20091009
  Serious: Yes (Disabling)
  Sender: FDA-Public Use
  Company Number: None

PATIENT
  Sex: Female
  Weight: 56.246 kg

DRUGS (1)
  1. ZICAM LIQUID NASAL GEL COLD REMEDY [Suspect]
     Indication: NASOPHARYNGITIS
     Dosage: 1 PUMP EA NOSTRIL 2 X 1 DAY

REACTIONS (3)
  - AGEUSIA [None]
  - ANOSMIA [None]
  - RHINALGIA [None]
